FAERS Safety Report 25405701 (Version 3)
Quarter: 2025Q2

REPORT INFORMATION
  Report Type: Spontaneous
  Country: US (occurrence: US)
  Receive Date: 20250606
  Receipt Date: 20250624
  Transmission Date: 20250716
  Serious: No
  Sender: LUPIN
  Company Number: US-LUPIN PHARMACEUTICALS INC.-2025-04527

PATIENT
  Age: 51 Year
  Weight: 90.703 kg

DRUGS (1)
  1. AMLODIPINE BESYLATE [Suspect]
     Active Substance: AMLODIPINE BESYLATE
     Indication: Product used for unknown indication
     Route: 065

REACTIONS (4)
  - Pain in extremity [Unknown]
  - Arthralgia [Unknown]
  - Adverse event [Unknown]
  - Product quality issue [Unknown]
